FAERS Safety Report 8975121 (Version 1)
Quarter: 2012Q4

REPORT INFORMATION
  Report Type: 
  Country: US (occurrence: US)
  Receive Date: 20121219
  Receipt Date: 20121219
  Transmission Date: 20130627
  Serious: No
  Sender: FDA-Public Use
  Company Number: US-AMGEN-USASP2012074524

PATIENT
  Age: 78 Year
  Sex: Female
  Weight: 76.83 kg

DRUGS (6)
  1. PROLIA [Suspect]
     Indication: OSTEOPOROSIS POSTMENOPAUSAL
     Dosage: 60 mg, q6mo
     Route: 058
     Dates: start: 20111017
  2. ASA [Concomitant]
     Dosage: 81 mg, qd
     Route: 048
  3. CRESTOR [Concomitant]
     Dosage: 5 mg, qd
     Route: 048
  4. METOPROLOL [Concomitant]
     Dosage: 25 mg, qd
     Route: 048
  5. RANEXA [Concomitant]
     Dosage: 500 mg, qd
     Route: 048
  6. GLIMEPIRIDE [Concomitant]
     Dosage: 1 mg, qd
     Route: 048

REACTIONS (2)
  - Bone pain [Not Recovered/Not Resolved]
  - Pain in extremity [Recovered/Resolved]
